FAERS Safety Report 6652872-8 (Version None)
Quarter: 2010Q1

REPORT INFORMATION
  Report Type: 
  Country: None (occurrence: None)
  Receive Date: 20100325
  Receipt Date: 20100325
  Transmission Date: 20100710
  Serious: Yes (Hospitalization, Other)
  Sender: FDA-Public Use
  Company Number: None

PATIENT
  Age: 79 Year
  Sex: Male
  Weight: 83.4619 kg

DRUGS (5)
  1. TARCEVA [Suspect]
     Indication: BILIARY CANCER METASTATIC
     Dosage: 100 MG DAILY PO
     Route: 048
     Dates: start: 20100207, end: 20100314
  2. GEMZAR [Suspect]
  3. TYLENOL PM [Concomitant]
  4. MAG OX [Concomitant]
  5. PRILOSEC [Concomitant]

REACTIONS (6)
  - ASTHENIA [None]
  - NAUSEA [None]
  - PANCYTOPENIA [None]
  - RASH [None]
  - SKIN EXFOLIATION [None]
  - VOMITING [None]
